FAERS Safety Report 15594868 (Version 1)
Quarter: 2018Q4

REPORT INFORMATION
  Report Type: Spontaneous
  Country: US (occurrence: US)
  Receive Date: 20181106
  Receipt Date: 20181106
  Transmission Date: 20190205
  Serious: Yes (Other)
  Sender: FDA-Public Use
  Company Number: US-TEIKOKU PHARMA USA-TPU2018-00681

PATIENT
  Age: 63 Year
  Sex: Female
  Weight: 66.06 kg

DRUGS (8)
  1. LIDOCAINE PATCH [Suspect]
     Active Substance: LIDOCAINE
     Indication: ARTHRITIS
  2. POTASSIUM [Concomitant]
     Active Substance: POTASSIUM
  3. MAGNESIUM [Concomitant]
     Active Substance: MAGNESIUM
  4. PROGRAF [Concomitant]
     Active Substance: TACROLIMUS\TACROLIMUS ANHYDROUS
  5. ENALAPRIL [Concomitant]
     Active Substance: ENALAPRIL
     Indication: HYPERTENSION
  6. LIDODERM [Suspect]
     Active Substance: LIDOCAINE
     Indication: ARTHRITIS
     Dosage: 1-2 PATCHES ON MY SHOULDERS, LOWER BACK AND KNEES AS I NEED THEM. I DON^T USE THEM ALL THE TIME.
     Route: 061
  7. LIDODERM [Suspect]
     Active Substance: LIDOCAINE
     Indication: FIBROMYALGIA
  8. CATAPRES [Concomitant]
     Active Substance: CLONIDINE HYDROCHLORIDE
     Indication: HYPERTENSION

REACTIONS (6)
  - Brain injury [Unknown]
  - Amnesia [Not Recovered/Not Resolved]
  - Wrong technique in product usage process [Unknown]
  - Drug ineffective for unapproved indication [Unknown]
  - Liver transplant [Unknown]
  - Immune system disorder [Unknown]

NARRATIVE: CASE EVENT DATE: 20091116
